FAERS Safety Report 21140860 (Version 1)
Quarter: 2022Q3

REPORT INFORMATION
  Report Type: Spontaneous
  Country: US (occurrence: None)
  Receive Date: 20220728
  Receipt Date: 20220728
  Transmission Date: 20221026
  Serious: No
  Sender: FDA-Public Use
  Company Number: US-Ultragenyx Pharmaceutical Inc.-US-UGNX-22-00023

PATIENT
  Age: 20 Year
  Sex: Female

DRUGS (4)
  1. DOJOLVI [Suspect]
     Active Substance: TRIHEPTANOIN
     Indication: Very long-chain acyl-coenzyme A dehydrogenase deficiency
     Route: 048
     Dates: start: 20220109
  2. DOJOLVI [Suspect]
     Active Substance: TRIHEPTANOIN
     Route: 048
  3. DOJOLVI [Suspect]
     Active Substance: TRIHEPTANOIN
     Route: 048
     Dates: start: 20220109
  4. DOJOLVI [Suspect]
     Active Substance: TRIHEPTANOIN
     Route: 048
     Dates: start: 20211231

REACTIONS (4)
  - Muscle spasms [Unknown]
  - Abdominal discomfort [Unknown]
  - Nausea [Unknown]
  - Vomiting [Unknown]

NARRATIVE: CASE EVENT DATE: 20220301
